FAERS Safety Report 23332060 (Version 2)
Quarter: 2023Q4

REPORT INFORMATION
  Report Type: Report from Study
  Country: CN (occurrence: CN)
  Receive Date: 20231222
  Receipt Date: 20231229
  Transmission Date: 20240110
  Serious: No
  Sender: FDA-Public Use
  Company Number: CN-PFIZER INC-PV202300205614

PATIENT
  Age: 89 Year
  Sex: Male
  Weight: 72 kg

DRUGS (3)
  1. NIRMATRELVIR\RITONAVIR [Suspect]
     Active Substance: NIRMATRELVIR\RITONAVIR
     Indication: COVID-19
     Dosage: [NIRMATRELVIR 150 MG]/[RITONAVIR 100 MG], Q12H
     Route: 048
     Dates: start: 20220502, end: 20220508
  2. NIRMATRELVIR\RITONAVIR [Suspect]
     Active Substance: NIRMATRELVIR\RITONAVIR
     Dosage: [NIRMATRELVIR 300 MG]/[RITONAVIR 100 MG], Q12H
     Route: 048
     Dates: start: 20220508, end: 20220509
  3. NIRMATRELVIR\RITONAVIR [Suspect]
     Active Substance: NIRMATRELVIR\RITONAVIR
     Dosage: [NIRMATRELVIR 150 MG]/[RITONAVIR 50 MG], Q12H
     Route: 048
     Dates: start: 20220509, end: 20220513

REACTIONS (1)
  - Overdose [Unknown]

NARRATIVE: CASE EVENT DATE: 20220101
